FAERS Safety Report 13178322 (Version 1)
Quarter: 2017Q1

REPORT INFORMATION
  Report Type: Spontaneous
  Country: US (occurrence: US)
  Receive Date: 20170131
  Receipt Date: 20170131
  Transmission Date: 20170428
  Serious: No
  Sender: FDA-Public Use
  Company Number: None

PATIENT
  Age: 76 Year
  Sex: Male
  Weight: 85.5 kg

DRUGS (1)
  1. AFRIN [Suspect]
     Active Substance: OXYMETAZOLINE
     Indication: PULMONARY CONGESTION
     Route: 055
     Dates: start: 20170118, end: 20170120

REACTIONS (2)
  - Epistaxis [None]
  - Parosmia [None]

NARRATIVE: CASE EVENT DATE: 20170117
